FAERS Safety Report 19944220 (Version 1)
Quarter: 2021Q4

REPORT INFORMATION
  Report Type: Spontaneous
  Country: US (occurrence: US)
  Receive Date: 20211011
  Receipt Date: 20211011
  Transmission Date: 20220303
  Serious: No
  Sender: FDA-Public Use
  Company Number: US-JUBILANT CADISTA PHARMACEUTICALS-2021JUB00028

PATIENT
  Age: 38 Year
  Sex: Female
  Weight: 63.5 kg

DRUGS (1)
  1. PREDNISONE [Suspect]
     Active Substance: PREDNISONE
     Indication: Sinusitis
     Dosage: UNK, 2X/DAY
     Dates: start: 202101, end: 202101

REACTIONS (11)
  - Burning sensation [Recovering/Resolving]
  - Hypoaesthesia [Recovering/Resolving]
  - Pain [Recovering/Resolving]
  - Asthenia [Recovering/Resolving]
  - Lung disorder [Recovering/Resolving]
  - Chest pain [Recovering/Resolving]
  - Musculoskeletal stiffness [Recovering/Resolving]
  - Abnormal behaviour [Recovering/Resolving]
  - Weight decreased [Not Recovered/Not Resolved]
  - Allergic reaction to excipient [Recovering/Resolving]
  - Off label use [Recovered/Resolved]

NARRATIVE: CASE EVENT DATE: 20210101
